FAERS Safety Report 8492140-5 (Version None)
Quarter: 2012Q3

REPORT INFORMATION
  Report Type: 
  Country: None (occurrence: None)
  Receive Date: 20120706
  Receipt Date: 20120702
  Transmission Date: 20120928
  Serious: Yes (Death)
  Sender: FDA-Public Use
  Company Number: JP-ASTRAZENECA-2012SE45521

PATIENT
  Age: 63 Year
  Sex: Male

DRUGS (9)
  1. PIPERACILLIN AND TAZOBACTAM [Suspect]
     Route: 042
  2. ETOPOSIDE [Concomitant]
  3. DAUNORUBICIN HCL [Concomitant]
  4. FLUCONAZOLE [Concomitant]
     Route: 048
  5. CYTARABINE [Concomitant]
  6. MEROPENEM [Suspect]
     Indication: LIVER ABSCESS
     Route: 041
  7. VORICONAZOLE [Concomitant]
     Route: 048
  8. MITOXANTRONE [Concomitant]
  9. TEICOPLANIN [Concomitant]
     Route: 041

REACTIONS (1)
  - PNEUMONIA BACTERIAL [None]
